FAERS Safety Report 18820285 (Version 1)
Quarter: 2021Q1

REPORT INFORMATION
  Report Type: Spontaneous
  Country: IN (occurrence: IN)
  Receive Date: 20210202
  Receipt Date: 20210202
  Transmission Date: 20210419
  Serious: Yes (Death, Other)
  Sender: FDA-Public Use
  Company Number: IN-ASTELLAS-2021US003490

PATIENT
  Age: 7 Year
  Sex: Male

DRUGS (2)
  1. AMPHOTERICIN B, LIPOSOME [Suspect]
     Active Substance: AMPHOTERICIN B
     Indication: VISCERAL LEISHMANIASIS
     Dosage: 0.25 MG/KG/D AND INCREASED TO 1 MG/KG/D, SLOW INFUSION
     Route: 042
  2. SODIUM ANTIMONY GLUCONATE [Interacting]
     Active Substance: SODIUM ANTIMONYLGLUCONATE
     Indication: VISCERAL LEISHMANIASIS
     Dosage: UNK, UNKNOWN FREQ.
     Route: 030

REACTIONS (4)
  - Product use in unapproved indication [Unknown]
  - Shock [Fatal]
  - Off label use [Recovered/Resolved]
  - Drug interaction [Unknown]
